FAERS Safety Report 6515921-3 (Version None)
Quarter: 2009Q4

REPORT INFORMATION
  Report Type: 
  Country: None (occurrence: None)
  Receive Date: 20091223
  Receipt Date: 20090106
  Transmission Date: 20100525
  Serious: No
  Sender: FDA-Public Use
  Company Number: US-ABBOTT-09P-163-0496016-00

PATIENT
  Age: 68 Year
  Sex: Male

DRUGS (1)
  1. LUPRON DEPOT [Suspect]
     Indication: PROSTATE CANCER
     Route: 050

REACTIONS (6)
  - BRONCHITIS [None]
  - CONSTIPATION [None]
  - FATIGUE [None]
  - INSOMNIA [None]
  - NIGHT SWEATS [None]
  - RESPIRATORY TRACT INFECTION [None]
